FAERS Safety Report 7161493-2 (Version None)
Quarter: 2010Q4

REPORT INFORMATION
  Report Type: 
  Country: None (occurrence: None)
  Receive Date: 20101215
  Receipt Date: 20101213
  Transmission Date: 20110411
  Serious: No
  Sender: FDA-Public Use
  Company Number: US-PFIZER INC-2010171037

PATIENT
  Sex: Female
  Weight: 72.6 kg

DRUGS (5)
  1. PRISTIQ [Suspect]
     Indication: DEPRESSION
     Dosage: 50 MG, 1X/DAY
     Route: 048
     Dates: start: 20101206
  2. PRISTIQ [Suspect]
     Indication: DEPRESSED MOOD
  3. MULTI-VITAMINS [Concomitant]
     Indication: BLOOD TRIGLYCERIDES INCREASED
     Dosage: UNK
     Dates: start: 20060101
  4. FISH OIL [Concomitant]
     Indication: BLOOD TRIGLYCERIDES INCREASED
     Dosage: 1000 MG, UNK
     Dates: start: 20060101
  5. ACETYLSALICYLIC ACID [Concomitant]
     Indication: BLOOD TRIGLYCERIDES INCREASED
     Dosage: 81 MG, UNK
     Dates: start: 20060101

REACTIONS (1)
  - INITIAL INSOMNIA [None]
